FAERS Safety Report 21670125 (Version 1)
Quarter: 2022Q4

REPORT INFORMATION
  Report Type: Spontaneous
  Country: US (occurrence: None)
  Receive Date: 20221201
  Receipt Date: 20221201
  Transmission Date: 20230112
  Serious: No
  Sender: FDA-Public Use
  Company Number: None

PATIENT
  Sex: Female

DRUGS (1)
  1. HUMIRA [Suspect]
     Active Substance: ADALIMUMAB
     Indication: Psoriasis
     Dosage: FREQUENCY : AS DIRECTED;?INJECT 80MG PEN UNDER THE SKIN ON DAY 1, THEN 40MG PEN ON DAY 8, THEN 40MG
     Route: 058
     Dates: start: 202207

REACTIONS (1)
  - Drug ineffective [None]
